FAERS Safety Report 19668901 (Version 1)
Quarter: 2021Q3

REPORT INFORMATION
  Report Type: Spontaneous
  Country: US (occurrence: US)
  Receive Date: 20210806
  Receipt Date: 20210806
  Transmission Date: 20211014
  Serious: No
  Sender: FDA-Public Use
  Company Number: US-SA-2021SA257210

PATIENT
  Age: 32 Year
  Sex: Female

DRUGS (4)
  1. ADDYI [Concomitant]
     Active Substance: FLIBANSERIN
  2. METFORMIN [Concomitant]
     Active Substance: METFORMIN HYDROCHLORIDE
  3. CITALOPRAM [Concomitant]
     Active Substance: CITALOPRAM HYDROBROMIDE
  4. DUPIXENT [Suspect]
     Active Substance: DUPILUMAB
     Indication: GOITRE
     Dosage: 300 MG
     Dates: start: 20190425

REACTIONS (2)
  - Rash [Unknown]
  - Product use in unapproved indication [Unknown]

NARRATIVE: CASE EVENT DATE: 20190425
